FAERS Safety Report 14518126 (Version 2)
Quarter: 2018Q1

REPORT INFORMATION
  Report Type: Spontaneous
  Country: HU (occurrence: HU)
  Receive Date: 20180212
  Receipt Date: 20180219
  Transmission Date: 20180509
  Serious: Yes (Disabling)
  Sender: FDA-Public Use
  Company Number: HU-ABBVIE-18S-076-2250994-00

PATIENT
  Age: 78 Year
  Sex: Female
  Weight: 67 kg

DRUGS (5)
  1. LOSARTAN (LOSARTAN 1A PHARMA) [Concomitant]
     Indication: HYPERTENSION
     Route: 048
  2. VIEKIRAX [Suspect]
     Active Substance: OMBITASVIR\PARITAPREVIR\RITONAVIR
     Indication: CHRONIC HEPATITIS C
     Dosage: 12.5/75/50 MG; 2 TABLETS AT A TIME
     Route: 048
     Dates: start: 20180126, end: 20180207
  3. EXVIERA [Suspect]
     Active Substance: DASABUVIR
     Indication: CHRONIC HEPATITIS C
     Route: 048
     Dates: start: 20180126, end: 20180207
  4. FELODIPINE. [Suspect]
     Active Substance: FELODIPINE
     Indication: HYPERTENSION
     Route: 048
     Dates: start: 20120510
  5. ELIQUIS [Concomitant]
     Active Substance: APIXABAN
     Indication: ATRIAL FIBRILLATION
     Route: 048
     Dates: start: 20171015

REACTIONS (5)
  - Nausea [Recovered/Resolved]
  - Vomiting [Recovered/Resolved]
  - Cardiac failure [Unknown]
  - Oedema peripheral [Recovering/Resolving]
  - Dyspnoea [Unknown]

NARRATIVE: CASE EVENT DATE: 20180126
